FAERS Safety Report 9095557 (Version 1)
Quarter: 2013Q1

REPORT INFORMATION
  Report Type: Spontaneous
  Country: ES (occurrence: None)
  Receive Date: 20130123
  Receipt Date: 20130123
  Transmission Date: 20140127
  Serious: Yes (Hospitalization)
  Sender: FDA-Public Use
  Company Number: PROF20130001

PATIENT
  Age: 40 Year
  Sex: Male

DRUGS (2)
  1. PROPAFENONE HYDROCHLORIDE TABLETS (PROPAFENONE HYDROCHLORIDE) (TABLETS) [Suspect]
     Indication: ATRIAL FIBRILLATION
     Route: 048
  2. FLECAINIDE (FLECAINIDE) (UNKNOWN) (FLECAINIDE) [Concomitant]

REACTIONS (4)
  - Abdominal pain [None]
  - Blood urine present [None]
  - Porphyria acute [None]
  - Inappropriate antidiuretic hormone secretion [None]
